FAERS Safety Report 6744900-6 (Version None)
Quarter: 2010Q2

REPORT INFORMATION
  Report Type: 
  Country: None (occurrence: None)
  Receive Date: 20100527
  Receipt Date: 20100518
  Transmission Date: 20101027
  Serious: Yes (Hospitalization)
  Sender: FDA-Public Use
  Company Number: US-JNJCH-2010012593

PATIENT
  Age: 87 Year
  Sex: Male

DRUGS (6)
  1. ASPIRIN [Suspect]
     Indication: ANGIOPLASTY
     Dosage: TEXT:UNKNOWN
     Route: 048
  2. CLOPIDOGREL [Suspect]
     Indication: ANGIOPLASTY
     Dosage: TEXT:UNKNOWN
     Route: 048
  3. RAMIPRIL [Suspect]
     Indication: ANGIOPLASTY
     Dosage: TEXT:UNKNOWN
     Route: 048
  4. ATORVASTATIN [Suspect]
     Indication: ANGIOPLASTY
     Dosage: TEXT:UNKNOWN
     Route: 048
  5. METOPROLOL [Suspect]
     Indication: ANGIOPLASTY
     Dosage: TEXT:UNKNOWN
     Route: 048
  6. ENOXAPARIN SODIUM [Suspect]
     Indication: THROMBOSIS PROPHYLAXIS
     Dosage: TEXT:1 MG/KG DAILY
     Route: 065

REACTIONS (4)
  - CARDIAC FAILURE CONGESTIVE [None]
  - HAEMORRHAGE [None]
  - PULMONARY OEDEMA [None]
  - THROMBOCYTOPENIA [None]
